FAERS Safety Report 24432614 (Version 3)
Quarter: 2024Q4

REPORT INFORMATION
  Report Type: Spontaneous
  Country: US (occurrence: US)
  Receive Date: 20241014
  Receipt Date: 20241230
  Transmission Date: 20250114
  Serious: Yes (Other)
  Sender: BRISTOL-MYERS SQUIBB COMPANY
  Company Number: US-BRISTOL-MYERS SQUIBB COMPANY-2024-160200

PATIENT
  Age: 80 Year
  Sex: Male

DRUGS (1)
  1. LENALIDOMIDE [Suspect]
     Active Substance: LENALIDOMIDE
     Indication: Plasma cell myeloma
     Dosage: TAKE 1 CAPSULE WHOLE BY MOUTH WITH WATER AT SAMETIME DAILY ON DAYS 1-21 OF EACH 28-DAY CYCLE
     Route: 048
     Dates: end: 20241206

REACTIONS (3)
  - Hernia [Recovered/Resolved]
  - Bladder disorder [Recovering/Resolving]
  - Fatigue [Recovering/Resolving]
